FAERS Safety Report 5402141-9 (Version None)
Quarter: 2007Q3

REPORT INFORMATION
  Report Type: 
  Country: None (occurrence: None)
  Receive Date: 20070801
  Receipt Date: 20070727
  Transmission Date: 20080115
  Serious: No
  Sender: FDA-Public Use
  Company Number: FR-ELI_LILLY_AND_COMPANY-FR200706000328

PATIENT
  Age: 30 Year
  Sex: Male
  Weight: 55 kg

DRUGS (4)
  1. ZYPREXA [Suspect]
     Indication: MANIA
     Dosage: 5 MG, DAILY (1/D)
     Route: 048
     Dates: start: 20070521
  2. MIMPARA                            /01735301/ [Concomitant]
     Indication: RENAL FAILURE
     Dosage: 90 MG, DAILY (1/D)
     Route: 048
  3. TENORMIN [Concomitant]
     Dosage: 50 MG, DAILY (1/D)
     Route: 048
  4. KARDEGIC [Concomitant]
     Indication: HYPERTENSION
     Dosage: 75 MG, DAILY (1/D)
     Route: 048

REACTIONS (1)
  - OEDEMA [None]
